FAERS Safety Report 5838948-3 (Version None)
Quarter: 2008Q3

REPORT INFORMATION
  Report Type: 
  Country: None (occurrence: None)
  Receive Date: 20080808
  Receipt Date: 20080806
  Transmission Date: 20090109
  Serious: Yes (Death, Other)
  Sender: FDA-Public Use
  Company Number: PHHY2008AR17198

PATIENT
  Sex: Female

DRUGS (1)
  1. DIOVAN [Suspect]
     Indication: HYPERTENSION
     Dosage: 160 MG, QD
     Dates: start: 20080617

REACTIONS (4)
  - ASPIRATION BRONCHIAL [None]
  - HYPERTENSION [None]
  - LUNG DISORDER [None]
  - PNEUMONIA [None]
